FAERS Safety Report 17677255 (Version 1)
Quarter: 2020Q2

REPORT INFORMATION
  Report Type: Spontaneous
  Country: US (occurrence: US)
  Receive Date: 20200416
  Receipt Date: 20200416
  Transmission Date: 20200714
  Serious: No
  Sender: FDA-Public Use
  Company Number: US-PERRIGO-19US004421

PATIENT
  Sex: Female

DRUGS (1)
  1. SULFACETAMIDE SODIUM. [Suspect]
     Active Substance: SULFACETAMIDE SODIUM
     Indication: ROSACEA
     Dosage: UNK, UNK
     Route: 061

REACTIONS (1)
  - Drug ineffective for unapproved indication [Unknown]
